FAERS Safety Report 10262526 (Version 1)
Quarter: 2014Q2

REPORT INFORMATION
  Report Type: Spontaneous
  Country: IT (occurrence: IT)
  Receive Date: 20140626
  Receipt Date: 20140626
  Transmission Date: 20141212
  Serious: Yes (Other)
  Sender: FDA-Public Use
  Company Number: IT-ACTAVIS-2014-13705

PATIENT
  Age: 3 Year
  Sex: Male
  Weight: 16 kg

DRUGS (1)
  1. IBUPROFEN (UNKNOWN) [Suspect]
     Indication: PYREXIA
     Dosage: 100 MG EVERY 5-6 HOURS FOR 4 DAYS
     Route: 048
     Dates: start: 20140319, end: 20140322

REACTIONS (3)
  - Haematemesis [Recovering/Resolving]
  - Melaena [Recovering/Resolving]
  - Drug abuse [Recovering/Resolving]
